FAERS Safety Report 9644029 (Version 5)
Quarter: 2020Q3

REPORT INFORMATION
  Report Type: Spontaneous
  Country: IT (occurrence: IT)
  Receive Date: 20131024
  Receipt Date: 20200803
  Transmission Date: 20201103
  Serious: Yes (Hospitalization)
  Sender: FDA-Public Use
  Company Number: PHHY2013IT117156

PATIENT
  Age: 58 Year
  Sex: Male

DRUGS (8)
  1. NEBILOL H [Suspect]
     Active Substance: HYDROCHLOROTHIAZIDE\NEBIVOLOL HYDROCHLORIDE
     Dosage: 1 DF (12.5/2.5), QD
     Route: 065
  2. IDROCLOROTIAZIDE [Concomitant]
     Active Substance: HYDROCHLOROTHIAZIDE
     Indication: PRODUCT USED FOR UNKNOWN INDICATION
     Dosage: UNK
     Route: 065
  3. AMOXICILLIN,CLAVULANIC ACID [Suspect]
     Active Substance: AMOXICILLIN\CLAVULANIC ACID
     Indication: PERIODONTAL DISEASE
  4. DOXAZOSIN [Suspect]
     Active Substance: DOXAZOSIN MESYLATE
     Indication: HYPERTENSION
     Dosage: 2 MG, QD
     Route: 048
  5. AMOXICILLIN,CLAVULANIC ACID [Suspect]
     Active Substance: AMOXICILLIN\CLAVULANIC ACID
     Indication: PROPHYLAXIS
     Dosage: 1 G (875/125 MG), ONCE/SINGLE
     Route: 048
     Dates: start: 201201, end: 201201
  6. NEBILOL H [Suspect]
     Active Substance: HYDROCHLOROTHIAZIDE\NEBIVOLOL HYDROCHLORIDE
     Indication: HYPERTENSION
     Dosage: 15 MG, DAILY (BRAND NAME NOT REPORTED)
     Route: 048
  7. TAPAZOLE [Concomitant]
     Active Substance: METHIMAZOLE
     Indication: HYPERTHYROIDISM
     Dosage: UNK
     Route: 048
  8. THIAMAZOLE [Suspect]
     Active Substance: METHIMAZOLE
     Indication: HYPERTHYROIDISM
     Dosage: 5 MG
     Route: 048

REACTIONS (13)
  - Wheezing [Recovered/Resolved]
  - Electrocardiogram ST segment elevation [Recovered/Resolved]
  - Bronchospasm [Recovered/Resolved]
  - Sinus rhythm [Recovered/Resolved]
  - Dyspnoea [Recovered/Resolved]
  - Acute coronary syndrome [Recovered/Resolved]
  - Anaphylactic reaction [Recovered/Resolved]
  - Chest pain [Recovered/Resolved]
  - Chest discomfort [Recovered/Resolved]
  - Erythema [Recovered/Resolved]
  - Rash [Recovered/Resolved]
  - Kounis syndrome [Recovered/Resolved]
  - Breath sounds [Recovered/Resolved]

NARRATIVE: CASE EVENT DATE: 20120101
